FAERS Safety Report 4677097-7 (Version None)
Quarter: 2005Q2

REPORT INFORMATION
  Report Type: 
  Country: None (occurrence: None)
  Receive Date: 20050525
  Receipt Date: 20050525
  Transmission Date: 20051028
  Serious: Yes (Hospitalization)
  Sender: FDA-Public Use
  Company Number: None

PATIENT
  Age: 64 Year
  Sex: Male
  Weight: 78.6 kg

DRUGS (2)
  1. CISPLATIN [Suspect]
  2. FLUOROURACIL [Suspect]
     Dosage: 1400 MGIV
     Route: 042
     Dates: start: 20050110, end: 20050114

REACTIONS (4)
  - CANDIDIASIS [None]
  - CELLULITIS [None]
  - MUCOSAL INFLAMMATION [None]
  - PYREXIA [None]
